FAERS Safety Report 9882843 (Version 2)
Quarter: 2014Q1

REPORT INFORMATION
  Report Type: Spontaneous
  Country: KR (occurrence: KR)
  Receive Date: 20140207
  Receipt Date: 20140207
  Transmission Date: 20141002
  Serious: Yes (Death, Hospitalization, Other)
  Sender: FDA-Public Use
  Company Number: KR-ASTRAZENECA-2014SE02610

PATIENT
  Age: 77 Year
  Sex: Male
  Weight: 52 kg

DRUGS (5)
  1. BRILINTA [Suspect]
     Indication: CORONARY ARTERY DISEASE
     Route: 048
     Dates: start: 201311, end: 20140106
  2. ASPIRIN [Concomitant]
     Indication: CORONARY ARTERY DISEASE
     Dates: start: 200012, end: 20140106
  3. DILTIAZEM [Concomitant]
     Indication: CORONARY ARTERY DISEASE
     Dates: start: 200012, end: 20140106
  4. ISOSORBIDE DINITRATE [Concomitant]
     Indication: CORONARY ARTERY DISEASE
     Dates: start: 200012, end: 20140106
  5. EZETIMIBE, SIMVASTATIN [Concomitant]
     Indication: CORONARY ARTERY DISEASE
     Dosage: 10/20 MG, DAILY
     Dates: start: 201310, end: 20140106

REACTIONS (2)
  - Subdural haemorrhage [Fatal]
  - Brain death [Fatal]
